FAERS Safety Report 4485456-0 (Version None)
Quarter: 2004Q4

REPORT INFORMATION
  Report Type: 
  Country: None (occurrence: None)
  Receive Date: 20041026
  Receipt Date: 20041020
  Transmission Date: 20050328
  Serious: Yes (Other)
  Sender: FDA-Public Use
  Company Number: PHBS2004CA13979

PATIENT
  Sex: Female

DRUGS (1)
  1. ZOMETA [Suspect]
     Route: 065
     Dates: start: 20020404, end: 20040903

REACTIONS (2)
  - NEPHROLITHIASIS [None]
  - RENAL PAIN [None]
